FAERS Safety Report 14206000 (Version 14)
Quarter: 2019Q1

REPORT INFORMATION
  Report Type: Spontaneous
  Country: IT (occurrence: IT)
  Receive Date: 20171120
  Receipt Date: 20190207
  Transmission Date: 20190417
  Serious: Yes (Hospitalization, Other)
  Sender: FDA-Public Use
  Company Number: IT-ASCEND THERAPEUTICS-2034677

PATIENT
  Age: 41 Year
  Sex: Female

DRUGS (13)
  1. ESTRADIOL. [Suspect]
     Active Substance: ESTRADIOL
     Route: 062
  2. LEUPRORELIN ACETATE [Suspect]
     Active Substance: LEUPROLIDE ACETATE
     Route: 065
  3. LEUPRORELIN ACETATE [Suspect]
     Active Substance: LEUPROLIDE ACETATE
  4. ESTRADIOL. [Suspect]
     Active Substance: ESTRADIOL
     Route: 062
  5. CYPROTERONE ACETATE [Suspect]
     Active Substance: CYPROTERONE ACETATE
     Route: 065
  6. ESTROGEL [Suspect]
     Active Substance: ESTRADIOL
     Indication: FEMINISATION ACQUIRED
     Route: 062
  7. ESTRADIOL. [Suspect]
     Active Substance: ESTRADIOL
     Route: 062
  8. ESTRADIOL. [Suspect]
     Active Substance: ESTRADIOL
     Route: 062
  9. CYPROTERONE ACETATE [Suspect]
     Active Substance: CYPROTERONE ACETATE
     Route: 009
  10. ESTRADIOL. [Suspect]
     Active Substance: ESTRADIOL
  11. ESTRADIOL. [Suspect]
     Active Substance: ESTRADIOL
     Route: 062
  12. ESTRADIOL. [Suspect]
     Active Substance: ESTRADIOL
     Route: 062
  13. ESTRADIOL. [Suspect]
     Active Substance: ESTRADIOL

REACTIONS (4)
  - Reading disorder [Unknown]
  - Off label use [Unknown]
  - Prosopagnosia [Unknown]
  - Meningioma [Recovered/Resolved]
